FAERS Safety Report 20570741 (Version 1)
Quarter: 2022Q1

REPORT INFORMATION
  Report Type: Spontaneous
  Country: NL (occurrence: NL)
  Receive Date: 20220309
  Receipt Date: 20220309
  Transmission Date: 20220424
  Serious: Yes (Other)
  Sender: FDA-Public Use
  Company Number: None

PATIENT
  Age: 79 Year
  Sex: Male
  Weight: 86 kg

DRUGS (3)
  1. FLECAINIDE [Suspect]
     Active Substance: FLECAINIDE
     Indication: Arrhythmia
     Dosage: 1 DOSAGE FORMS DAILY; THERAPY END DATE: ASKU; FLECAINIDE TABLET 50MG / BRAND NAME NOT SPECIFIED
     Dates: start: 202101
  2. METOPROLOL [Suspect]
     Active Substance: METOPROLOL
     Indication: Arrhythmia
     Dosage: PILL 25MG, THERAPY END DATE: ASKU; METOPROLOL TABLET MGA 25MG (SUCCINATE) / BRAND NAME NOT SPECIFIED
     Dates: start: 202101
  3. ELIQUIS [Suspect]
     Active Substance: APIXABAN
     Indication: Anticoagulant therapy
     Dosage: 10 MILLIGRAM DAILY; THERAPY END DATE: ASKU; APIXABAN TABLET 5MG / ELIQUIS TABLET FILM COATED 5MG
     Dates: start: 202101

REACTIONS (5)
  - Arrhythmia [Recovered/Resolved]
  - Syncope [Recovered/Resolved]
  - Malaise [Recovered/Resolved]
  - Hypotonia [Recovered/Resolved]
  - Hyperhidrosis [Recovered/Resolved]

NARRATIVE: CASE EVENT DATE: 20211208
